FAERS Safety Report 24060601 (Version 6)
Quarter: 2024Q3

REPORT INFORMATION
  Report Type: Spontaneous
  Country: US (occurrence: US)
  Receive Date: 20240708
  Receipt Date: 20240813
  Transmission Date: 20241017
  Serious: Yes (Other)
  Sender: ROCHE
  Company Number: US-ROCHE-10000016094

PATIENT
  Sex: Female

DRUGS (2)
  1. XOLAIR [Suspect]
     Active Substance: OMALIZUMAB
     Indication: Asthma
     Route: 058
     Dates: start: 202007
  2. XOLAIR [Suspect]
     Active Substance: OMALIZUMAB
     Indication: Asthma

REACTIONS (1)
  - Anaphylactic reaction [Unknown]
